FAERS Safety Report 19775564 (Version 2)
Quarter: 2021Q3

REPORT INFORMATION
  Report Type: Report from Study
  Country: US (occurrence: US)
  Receive Date: 20210901
  Receipt Date: 20210913
  Transmission Date: 20211014
  Serious: Yes (Death, Hospitalization, Other)
  Sender: FDA-Public Use
  Company Number: US-GILEAD-2021-0545914

PATIENT
  Age: 21 Year
  Sex: Female
  Weight: 42 kg

DRUGS (22)
  1. NEURONTIN [Concomitant]
     Active Substance: GABAPENTIN
  2. MERREM [Concomitant]
     Active Substance: MEROPENEM
  3. PREDNISONE. [Concomitant]
     Active Substance: PREDNISONE
  4. MELATONIN [Concomitant]
     Active Substance: MELATONIN
  5. METOPROLOL. [Concomitant]
     Active Substance: METOPROLOL
  6. LANTUS [Concomitant]
     Active Substance: INSULIN GLARGINE
  7. TRAMADOL. [Concomitant]
     Active Substance: TRAMADOL
  8. AZTREONAM LYSINE [Suspect]
     Active Substance: AZTREONAM LYSINE
     Indication: PSEUDOMONAS INFECTION
  9. BACTRIM [Concomitant]
     Active Substance: SULFAMETHOXAZOLE\TRIMETHOPRIM
  10. NOVOLOG [Concomitant]
     Active Substance: INSULIN ASPART
  11. PANCRELIPASE. [Concomitant]
     Active Substance: PANCRELIPASE
  12. PANTOPRAZOLE [Concomitant]
     Active Substance: PANTOPRAZOLE
  13. FLEXERIL [CEFIXIME] [Concomitant]
     Active Substance: CEFIXIME
  14. CALCIUM CARBONATE AND VITAMIN D3 [Concomitant]
     Active Substance: CALCIUM CARBONATE\CHOLECALCIFEROL
  15. MAGNESIUM OXIDE. [Concomitant]
     Active Substance: MAGNESIUM OXIDE
  16. RAPAMUNE [Concomitant]
     Active Substance: SIROLIMUS
  17. PROGRAF [Concomitant]
     Active Substance: TACROLIMUS
  18. AZTREONAM LYSINE [Suspect]
     Active Substance: AZTREONAM LYSINE
     Indication: CYSTIC FIBROSIS LUNG
     Dosage: UNK
     Route: 065
     Dates: start: 20160502
  19. ESOMEPRAZOLE. [Concomitant]
     Active Substance: ESOMEPRAZOLE MAGNESIUM
  20. ZITHROMAX [Concomitant]
     Active Substance: AZITHROMYCIN DIHYDRATE
  21. PROTONIX [OMEPRAZOLE] [Concomitant]
     Active Substance: OMEPRAZOLE
  22. TESSALON [Concomitant]
     Active Substance: BENZONATATE

REACTIONS (31)
  - Staphylococcal bacteraemia [Unknown]
  - Hepatocellular injury [Not Recovered/Not Resolved]
  - Cardiogenic shock [Unknown]
  - Respiratory disorder [Unknown]
  - Death [Fatal]
  - Pancreatic failure [Unknown]
  - Chronic respiratory failure [Unknown]
  - Sepsis [Unknown]
  - COVID-19 pneumonia [Unknown]
  - Malnutrition [Unknown]
  - Dyspnoea [Unknown]
  - Acute kidney injury [Unknown]
  - Acute respiratory distress syndrome [Unknown]
  - Metabolic alkalosis [Unknown]
  - Haemoptysis [Unknown]
  - Toxic encephalopathy [Unknown]
  - Respiratory distress [Unknown]
  - Lung transplant rejection [Unknown]
  - Seizure [Unknown]
  - Hypertension [Not Recovered/Not Resolved]
  - Lung transplant [Unknown]
  - Respiratory failure [Unknown]
  - Pneumonia staphylococcal [Unknown]
  - Pneumonia [Unknown]
  - Diabetes mellitus [Not Recovered/Not Resolved]
  - Headache [Unknown]
  - COVID-19 [Unknown]
  - Lung transplant rejection [Unknown]
  - Lung transplant rejection [Unknown]
  - Transplant rejection [Unknown]
  - Malnutrition [Unknown]

NARRATIVE: CASE EVENT DATE: 20190202
